FAERS Safety Report 21863471 (Version 1)
Quarter: 2023Q1

REPORT INFORMATION
  Report Type: Report from Study
  Country: US (occurrence: US)
  Receive Date: 20230115
  Receipt Date: 20230115
  Transmission Date: 20230417
  Serious: No
  Sender: FDA-Public Use
  Company Number: US-ABBVIE-4209875

PATIENT
  Sex: Male

DRUGS (1)
  1. HUMIRA [Suspect]
     Active Substance: ADALIMUMAB
     Indication: Product used for unknown indication
     Dosage: CITRATE FREE? FORM STRENGTH: 40 MILLIGRAM
     Route: 058

REACTIONS (2)
  - Exposure to toxic agent [Recovered/Resolved]
  - Migraine [Recovered/Resolved]
